FAERS Safety Report 6439745-0 (Version None)
Quarter: 2009Q4

REPORT INFORMATION
  Report Type: 
  Country: None (occurrence: None)
  Receive Date: 20091113
  Receipt Date: 20091030
  Transmission Date: 20100525
  Serious: Yes (Hospitalization)
  Sender: FDA-Public Use
  Company Number: JP-GENENTECH-293179

PATIENT
  Sex: Male

DRUGS (10)
  1. BEVACIZUMAB [Suspect]
     Indication: COLORECTAL CANCER METASTATIC
     Dosage: 320 MG, Q2W
     Route: 041
     Dates: start: 20080115, end: 20090925
  2. IRINOTECAN HCL [Suspect]
     Indication: COLORECTAL CANCER METASTATIC
     Dosage: 160 MG, Q2W
     Route: 041
     Dates: start: 20080115, end: 20090925
  3. TS-1 [Suspect]
     Indication: COLORECTAL CANCER METASTATIC
     Dosage: 50 MG, BID
     Route: 048
     Dates: start: 20080115, end: 20090925
  4. ALTAT [Concomitant]
     Indication: DRUG USE FOR UNKNOWN INDICATION
  5. RENIVACE [Concomitant]
     Indication: DRUG USE FOR UNKNOWN INDICATION
  6. ASPIRIN [Concomitant]
     Indication: DRUG USE FOR UNKNOWN INDICATION
  7. KYTRIL [Concomitant]
     Indication: DRUG USE FOR UNKNOWN INDICATION
  8. DECADRON [Concomitant]
     Indication: DRUG USE FOR UNKNOWN INDICATION
  9. NAUZELIN [Concomitant]
     Indication: DRUG USE FOR UNKNOWN INDICATION
  10. MUCODYNE [Concomitant]
     Indication: DRUG USE FOR UNKNOWN INDICATION

REACTIONS (1)
  - ENTEROCOLITIS [None]
